FAERS Safety Report 21895586 (Version 4)
Quarter: 2023Q2

REPORT INFORMATION
  Report Type: Spontaneous
  Country: ES (occurrence: ES)
  Receive Date: 20230123
  Receipt Date: 20230622
  Transmission Date: 20230721
  Serious: Yes (Death, Other)
  Sender: FDA-Public Use
  Company Number: ES-JNJFOC-20230138079

PATIENT
  Age: 90 Year
  Sex: Male
  Weight: 105 kg

DRUGS (11)
  1. STELARA [Suspect]
     Active Substance: USTEKINUMAB
     Indication: Psoriasis
     Dosage: LAST DOSE THREE MONTHS AGO
     Route: 058
     Dates: start: 20161115, end: 20201016
  2. STELARA [Suspect]
     Active Substance: USTEKINUMAB
  3. AMLODIPINE [Concomitant]
     Active Substance: AMLODIPINE BESYLATE
     Indication: Hypertension
  4. HYDROCHLOROTHIAZIDE [Concomitant]
     Active Substance: HYDROCHLOROTHIAZIDE
     Indication: Hypertension
     Dosage: 0.5/24 H
  5. INSULIN NOS [Concomitant]
     Active Substance: INSULIN NOS
     Indication: Diabetes mellitus
     Dosage: 112 U
  6. CALCIFEDIOL [Concomitant]
     Active Substance: CALCIFEDIOL
     Indication: Vitamin D deficiency
     Dosage: 1/15 DAYS
  7. PAROXETINE [Concomitant]
     Active Substance: PAROXETINE
     Indication: Depression
  8. RISPERIDONE [Concomitant]
     Active Substance: RISPERIDONE
     Indication: Depression
  9. FERROGLYCINE SULFATE [Concomitant]
     Active Substance: FERROGLYCINE SULFATE
     Indication: Iron deficiency
  10. CALCIPOTRIENE [Concomitant]
     Active Substance: CALCIPOTRIENE
     Indication: Psoriasis
     Route: 003
  11. METHYLPREDNISOLONE [Concomitant]
     Active Substance: METHYLPREDNISOLONE
     Indication: Psoriasis

REACTIONS (10)
  - Colon cancer [Fatal]
  - Chronic kidney disease [Unknown]
  - Haemorrhage [Unknown]
  - Endocarditis [Unknown]
  - Pneumonia klebsiella [Unknown]
  - Dyspnoea [Unknown]
  - Oedema peripheral [Unknown]
  - Anaemia [Unknown]
  - Asthenia [Unknown]
  - Pyrexia [Unknown]

NARRATIVE: CASE EVENT DATE: 20200805
